FAERS Safety Report 4745077-9 (Version None)
Quarter: 2005Q3

REPORT INFORMATION
  Report Type: 
  Country: None (occurrence: None)
  Receive Date: 20050815
  Receipt Date: 20050804
  Transmission Date: 20060218
  Serious: Yes (Hospitalization, Other)
  Sender: FDA-Public Use
  Company Number: US-JNJFOC-20050702206

PATIENT
  Sex: Female
  Weight: 36.29 kg

DRUGS (3)
  1. TOPAMAX [Suspect]
  2. TOPAMAX [Suspect]
     Indication: MIGRAINE PROPHYLAXIS
     Dosage: (MAY HAVE BEEN 100 MG DAILY)
  3. FROVA [Concomitant]
     Indication: MIGRAINE

REACTIONS (2)
  - DRUG WITHDRAWAL CONVULSIONS [None]
  - GRAND MAL CONVULSION [None]
